FAERS Safety Report 18606714 (Version 2)
Quarter: 2020Q4

REPORT INFORMATION
  Report Type: Spontaneous
  Country: US (occurrence: US)
  Receive Date: 20201211
  Receipt Date: 20201223
  Transmission Date: 20210114
  Serious: No
  Sender: FDA-Public Use
  Company Number: US-ASTRAZENECA-2020SF52458

PATIENT
  Sex: Female

DRUGS (1)
  1. BREZTRI AEROSPHERE [Suspect]
     Active Substance: BUDESONIDE\FORMOTEROL\GLYCOPYRRONIUM
     Indication: ASTHMA
     Route: 055

REACTIONS (6)
  - Cough [Unknown]
  - Wrong technique in product usage process [Unknown]
  - Feeling abnormal [Unknown]
  - Off label use [Recovered/Resolved]
  - Condition aggravated [Unknown]
  - Drug intolerance [Unknown]
